FAERS Safety Report 6397463-1 (Version None)
Quarter: 2009Q4

REPORT INFORMATION
  Report Type: 
  Country: None (occurrence: None)
  Receive Date: 20091012
  Receipt Date: 20091008
  Transmission Date: 20100525
  Serious: Yes (Life-Threatening, Other)
  Sender: FDA-Public Use
  Company Number: PHHY2009JP42671

PATIENT
  Age: 28 Year
  Sex: Female

DRUGS (5)
  1. VOLTAREN [Suspect]
     Indication: BRONCHITIS
     Dosage: 25MG DAILY
     Route: 048
     Dates: start: 20080718, end: 20080718
  2. PA [Suspect]
     Indication: BRONCHITIS
     Dosage: 6 TABLETS PER DAY
     Route: 048
     Dates: start: 20080718, end: 20080718
  3. FLOMOX [Suspect]
     Indication: BRONCHITIS
     Dosage: 100 MG, TID
     Route: 048
     Dates: start: 20080718, end: 20080718
  4. NICHOLASE [Concomitant]
     Dosage: 30 MG, UNK
     Route: 048
  5. MUCOSTA [Concomitant]
     Dosage: 300 MG, UNK
     Route: 048

REACTIONS (6)
  - BODY TEMPERATURE INCREASED [None]
  - DERMATITIS BULLOUS [None]
  - DRUG HYPERSENSITIVITY [None]
  - OCULOMUCOCUTANEOUS SYNDROME [None]
  - RASH GENERALISED [None]
  - STEVENS-JOHNSON SYNDROME [None]
